FAERS Safety Report 10497538 (Version 5)
Quarter: 2015Q4

REPORT INFORMATION
  Report Type: Spontaneous
  Country: US (occurrence: None)
  Receive Date: 20141002
  Receipt Date: 20151015
  Transmission Date: 20160304
  Serious: Yes (Other)
  Sender: FDA-Public Use
  Company Number: ADR-2014-01790

PATIENT
  Age: 62 Year
  Sex: Male

DRUGS (1)
  1. BACLOFEN INTRATHECAL 500 MCG/ML [Suspect]
     Active Substance: BACLOFEN
     Indication: MUSCLE SPASTICITY

REACTIONS (5)
  - Skin erosion [None]
  - Medical device site irritation [None]
  - Pocket erosion [None]
  - Blood blister [None]
  - Implant site vesicles [None]
